FAERS Safety Report 4434007-5 (Version None)
Quarter: 2004Q3

REPORT INFORMATION
  Report Type: 
  Country: None (occurrence: None)
  Receive Date: 20040825
  Receipt Date: 20040810
  Transmission Date: 20050211
  Serious: Yes (Death)
  Sender: FDA-Public Use
  Company Number: KII-2001-0013135

PATIENT
  Sex: Male

DRUGS (2)
  1. OXYCONTIN [Suspect]
     Indication: PAIN
  2. METHADONE HCL [Suspect]
     Indication: PAIN

REACTIONS (2)
  - COMA [None]
  - PAIN EXACERBATED [None]
